FAERS Safety Report 16633583 (Version 2)
Quarter: 2020Q2

REPORT INFORMATION
  Report Type: Spontaneous
  Country: NL (occurrence: NL)
  Receive Date: 20190725
  Receipt Date: 20200416
  Transmission Date: 20200713
  Serious: Yes (Other)
  Sender: FDA-Public Use
  Company Number: PHHY2019NL167226

PATIENT
  Sex: Female

DRUGS (3)
  1. LORMETAZEPAM [Interacting]
     Active Substance: LORMETAZEPAM
     Indication: PRODUCT USED FOR UNKNOWN INDICATION
     Dosage: 0.5 DF, QD (FOR THE NIGHT)
     Route: 065
     Dates: start: 20161125
  2. TRACYDAL [Suspect]
     Active Substance: TRANYLCYPROMINE SULFATE
     Indication: DEPRESSION
     Dosage: 20 MG, QD
     Route: 048
     Dates: start: 20161015
  3. OXAZEPAM. [Suspect]
     Active Substance: OXAZEPAM
     Indication: PRODUCT USED FOR UNKNOWN INDICATION
     Dosage: 10 MG, QD
     Route: 065
     Dates: start: 20161114

REACTIONS (41)
  - Hypertensive crisis [Recovered/Resolved]
  - Hyperhidrosis [Unknown]
  - Hair texture abnormal [Not Recovered/Not Resolved]
  - Hypertension [Recovered/Resolved]
  - Muscular weakness [Not Recovered/Not Resolved]
  - Muscle spasms [Not Recovered/Not Resolved]
  - Nausea [Unknown]
  - Overdose [Unknown]
  - Aggression [Unknown]
  - Potentiating drug interaction [Unknown]
  - Mental disorder [Unknown]
  - Compulsions [Not Recovered/Not Resolved]
  - Dry skin [Not Recovered/Not Resolved]
  - Mood swings [Unknown]
  - Aggression [Unknown]
  - Feeling cold [Unknown]
  - Myalgia [Not Recovered/Not Resolved]
  - Suspiciousness [Unknown]
  - Trismus [Unknown]
  - Hypertension [Not Recovered/Not Resolved]
  - Dyspnoea exertional [Not Recovered/Not Resolved]
  - Abdominal pain upper [Unknown]
  - Depression [Not Recovered/Not Resolved]
  - Drug withdrawal syndrome [Unknown]
  - Thirst [Unknown]
  - Dizziness [Not Recovered/Not Resolved]
  - Vision blurred [Not Recovered/Not Resolved]
  - Psychiatric symptom [Unknown]
  - Fluid retention [Not Recovered/Not Resolved]
  - Neck pain [Unknown]
  - Palpitations [Not Recovered/Not Resolved]
  - Balance disorder [Not Recovered/Not Resolved]
  - Chest pain [Not Recovered/Not Resolved]
  - Vomiting [Unknown]
  - Arthralgia [Unknown]
  - Panic attack [Not Recovered/Not Resolved]
  - Tremor [Unknown]
  - Anger [Unknown]
  - Hypotension [Not Recovered/Not Resolved]
  - Urinary retention [Unknown]
  - Headache [Unknown]

NARRATIVE: CASE EVENT DATE: 20161101
